FAERS Safety Report 26151717 (Version 1)
Quarter: 2025Q4

REPORT INFORMATION
  Report Type: Spontaneous
  Country: US (occurrence: None)
  Receive Date: 20251212
  Receipt Date: 20251212
  Transmission Date: 20260119
  Serious: Yes (Life-Threatening, Hospitalization, Disabling)
  Sender: FDA-CTU
  Company Number: None

PATIENT
  Age: 82 Year
  Sex: Female
  Weight: 54.43 kg

DRUGS (2)
  1. FOSAMAX [Suspect]
     Active Substance: ALENDRONATE SODIUM
     Indication: Osteoporosis
     Route: 048
     Dates: start: 20060101, end: 20160101
  2. PROLIA [Suspect]
     Active Substance: DENOSUMAB

REACTIONS (3)
  - Femur fracture [None]
  - Fall [None]
  - Memory impairment [None]

NARRATIVE: CASE EVENT DATE: 20241112
